FAERS Safety Report 5275542-X (Version None)
Quarter: 2007Q1

REPORT INFORMATION
  Report Type: 
  Country: None (occurrence: None)
  Receive Date: 20061213
  Receipt Date: 20040811
  Transmission Date: 20070707
  Serious: No
  Sender: FDA-Public Use
  Company Number: 2004UW08948

PATIENT
  Age: 7 Year
  Sex: Male
  Weight: 33.5662 kg

DRUGS (4)
  1. SEROQUEL [Suspect]
     Indication: BIPOLAR DISORDER
     Dosage: 300 MG DAILY PO
     Route: 048
  2. LITHIUM CARBONATE [Concomitant]
  3. TEGRETOL [Concomitant]
  4. GABITRIL [Concomitant]

REACTIONS (3)
  - HYPERGLYCAEMIA [None]
  - HYPOGLYCAEMIA [None]
  - LIPIDS INCREASED [None]
